FAERS Safety Report 11937312 (Version 2)
Quarter: 2016Q1

REPORT INFORMATION
  Report Type: Spontaneous
  Country: PT (occurrence: PT)
  Receive Date: 20160121
  Receipt Date: 20160216
  Transmission Date: 20160526
  Serious: Yes (Hospitalization)
  Sender: FDA-Public Use
  Company Number: PT-GILEAD-2016-0192508

PATIENT
  Age: 54 Year
  Sex: Male
  Weight: 75 kg

DRUGS (10)
  1. KAINEVER [Concomitant]
     Indication: INSOMNIA
     Route: 048
     Dates: start: 20141101
  2. AMITRIPTILINA [Concomitant]
     Active Substance: AMITRIPTYLINE HYDROCHLORIDE
     Indication: PRODUCT USED FOR UNKNOWN INDICATION
     Route: 065
  3. LORAZEPAM. [Concomitant]
     Active Substance: LORAZEPAM
     Indication: INSOMNIA
  4. MAGNESIUM CITRATE. [Concomitant]
     Active Substance: MAGNESIUM CITRATE
     Indication: BACK PAIN
     Route: 065
     Dates: start: 201505
  5. TRAMADOL + PARACETAMOL ACTAVIS [Concomitant]
     Indication: BACK PAIN
     Route: 065
     Dates: start: 201505
  6. EVIPLERA [Suspect]
     Active Substance: EMTRICITABINE\RILPIVIRINE\TENOFOVIR DISOPROXIL FUMARATE
     Indication: HIV INFECTION
     Dosage: VALIDADE: 09/2016
     Route: 048
     Dates: start: 20141112, end: 20150712
  7. LORAZEPAM. [Concomitant]
     Active Substance: LORAZEPAM
     Indication: PRODUCT USED FOR UNKNOWN INDICATION
     Route: 048
     Dates: start: 20141101
  8. HARPAGOPHYTUM PROCUMBENS [Concomitant]
  9. AMITRIPTILINA [Concomitant]
     Active Substance: AMITRIPTYLINE HYDROCHLORIDE
     Indication: INSOMNIA
     Route: 048
  10. ZARATOR                            /01326102/ [Concomitant]
     Indication: DYSLIPIDAEMIA
     Route: 048
     Dates: start: 2007

REACTIONS (6)
  - Arthralgia [Recovered/Resolved]
  - Flatulence [Unknown]
  - Asthenia [Recovered/Resolved]
  - Myalgia [Recovered/Resolved]
  - Dyspnoea [Recovered/Resolved with Sequelae]
  - Eosinophilia [Recovered/Resolved]

NARRATIVE: CASE EVENT DATE: 201505
